FAERS Safety Report 18947448 (Version 2)
Quarter: 2021Q1

REPORT INFORMATION
  Report Type: Spontaneous
  Country: US (occurrence: US)
  Receive Date: 20210226
  Receipt Date: 20210315
  Transmission Date: 20210420
  Serious: Yes (Other)
  Sender: FDA-Public Use
  Company Number: US-ALLERGAN-2107750US

PATIENT
  Sex: Female

DRUGS (2)
  1. REFRESH LACRI?LUBE [Suspect]
     Active Substance: MINERAL OIL\PETROLATUM
     Indication: DRY EYE
     Dosage: AT NIGHT
     Route: 047
  2. REFRESH OPTIVE MEGA?3 [Suspect]
     Active Substance: CARBOXYMETHYLCELLULOSE SODIUM\GLYCERIN\POLYSORBATE 80
     Indication: DRY EYE
     Dosage: DURING THE DAY
     Route: 047

REACTIONS (4)
  - Eyelid irritation [Not Recovered/Not Resolved]
  - Nervous system disorder [Not Recovered/Not Resolved]
  - Brain operation [Recovered/Resolved]
  - Eyelid retraction [Not Recovered/Not Resolved]

NARRATIVE: CASE EVENT DATE: 20201122
